FAERS Safety Report 9670171 (Version 2)
Quarter: 2013Q4

REPORT INFORMATION
  Report Type: Spontaneous
  Country: US (occurrence: None)
  Receive Date: 20131024
  Receipt Date: 20131031
  Transmission Date: 20140711
  Serious: Yes (Other)
  Sender: FDA-Public Use
  Company Number: 2013034779

PATIENT
  Sex: Male
  Weight: 85.28 kg

DRUGS (22)
  1. PRIVIGEN [Suspect]
     Indication: IMMUNODEFICIENCY COMMON VARIABLE
     Dosage: 40 G 1X/WEEK, OVER 2.5 HOURS INTRAVENOUS (NOT OTHERWISE SPECIFIED),
     Route: 042
     Dates: start: 20130130, end: 20130130
  2. LIPITOR (ATORVASTATIN CALCIUM) [Concomitant]
  3. LEVOFLOXACIN (LEVOFLOXACIN) [Concomitant]
  4. ACETAMINOPHEN (PARACETAMOL) [Concomitant]
  5. LIDOCAINE/PRILOCIANE [Concomitant]
  6. SODIUM CHLORIDE [Concomitant]
  7. ONDANSETRON (ONDANSETRON) [Concomitant]
  8. ZOLPIDEM (ZOLPIDEM) [Concomitant]
  9. AMLODIPINE (AMLODIPINE) [Concomitant]
  10. FLUTICASONE (FLUTICASONE) [Concomitant]
  11. POTASSIUM CL ER [Concomitant]
  12. FINASTERIDE (FINASTERIDE) [Concomitant]
  13. BUPROPION HCL [Concomitant]
  14. LISINOPRIL (LISINOPRIL) [Concomitant]
  15. VITAMIN D (ERGOCALCIFEROL) [Concomitant]
  16. HYDROCHLOROTHIAZIDE (HYDROCHLOROTHIAZIDE) [Concomitant]
  17. VITAMIN C (ASCORBIC ACID) [Concomitant]
  18. L ARGININE [Concomitant]
  19. MUCINEX DM (GUAIFENESIN) [Concomitant]
  20. OMEGA 3 (FISH OIL) [Concomitant]
  21. DIPHENHYDRAMINE (DIPHENHYDRAMINE) [Concomitant]
  22. EPI PEN [Concomitant]

REACTIONS (3)
  - Pyrexia [None]
  - Pain [None]
  - Lung infection [None]
